FAERS Safety Report 12371469 (Version 1)
Quarter: 2016Q2

REPORT INFORMATION
  Report Type: Spontaneous
  Country: US (occurrence: US)
  Receive Date: 20160516
  Receipt Date: 20160516
  Transmission Date: 20160815
  Serious: No
  Sender: FDA-Public Use
  Company Number: US-PFIZER INC-2016260844

PATIENT
  Sex: Male

DRUGS (1)
  1. ADVIL [Suspect]
     Active Substance: IBUPROFEN
     Dosage: UNK, 1X/DAY (1 A DAY AND FOR A MONTH OR 2 MONTHS AND THEN STARTED TAKING TWO AT 4 PM LAST EVENING)

REACTIONS (2)
  - Incorrect product storage [Unknown]
  - Drug effect incomplete [Unknown]
